FAERS Safety Report 11692649 (Version 1)
Quarter: 2015Q4

REPORT INFORMATION
  Report Type: Spontaneous
  Country: US (occurrence: None)
  Receive Date: 20151102
  Receipt Date: 20151102
  Transmission Date: 20160304
  Serious: No
  Sender: FDA-Public Use
  Company Number: None

PATIENT
  Age: 13 Year
  Sex: Male
  Weight: 81.19 kg

DRUGS (1)
  1. GUANFACINE ER 4MG TABLET [Suspect]
     Active Substance: GUANFACINE
     Indication: ATTENTION DEFICIT/HYPERACTIVITY DISORDER
     Route: 048
     Dates: start: 20150911, end: 20151029

REACTIONS (6)
  - Product substitution issue [None]
  - Excessive eye blinking [None]
  - Obsessive-compulsive disorder [None]
  - Condition aggravated [None]
  - Anxiety [None]
  - Unevaluable event [None]

NARRATIVE: CASE EVENT DATE: 20150911
